FAERS Safety Report 4512102-X (Version None)
Quarter: 2004Q4

REPORT INFORMATION
  Report Type: 
  Country: None (occurrence: None)
  Receive Date: 20041123
  Receipt Date: 20041111
  Transmission Date: 20050328
  Serious: Yes (Hospitalization, Disabling)
  Sender: FDA-Public Use
  Company Number: 2004-BP-11631NB

PATIENT
  Age: 67 Year
  Sex: Male

DRUGS (9)
  1. MEXITIL [Suspect]
     Indication: DIABETIC NEUROPATHY
     Dosage: 300 MG (100 MG) PO
     Route: 048
     Dates: start: 20030430, end: 20030602
  2. EUGLUCON (GLIBENCLAMIDE) (TA) [Concomitant]
  3. LIPOVAS (SIMVATATIN) (TA) [Concomitant]
  4. JUVELA NICOTINATE (TOCOPHERYL NICOTINATE) (KA) [Concomitant]
  5. CYANOCOBALAMIN [Concomitant]
  6. GASTER (FAMOTIDINE) (TA) [Concomitant]
  7. BUP-4 (PROPIVERINE HYDROCHLORIDE) (TA) [Concomitant]
  8. POLLAKISU (OXYBUTYNIN HYDROCHLORIDE) (TA) [Concomitant]
  9. HARNAL (TAMSULOSIN HYDROCHLORIDE) (KA) [Concomitant]

REACTIONS (2)
  - HYPERSENSITIVITY [None]
  - RENAL FAILURE ACUTE [None]
